FAERS Safety Report 6372607-6 (Version None)
Quarter: 2009Q3

REPORT INFORMATION
  Report Type: 
  Country: None (occurrence: None)
  Receive Date: 20090924
  Receipt Date: 20090918
  Transmission Date: 20100115
  Serious: Yes (Hospitalization, Other)
  Sender: FDA-Public Use
  Company Number: DE-WYE-H05575508

PATIENT
  Sex: Male

DRUGS (7)
  1. RAPAMUNE [Suspect]
     Indication: PROPHYLAXIS AGAINST TRANSPLANT REJECTION
     Route: 048
     Dates: start: 20071228, end: 20080905
  2. RAPAMUNE [Suspect]
     Dosage: NOT PROVIDED
     Route: 048
     Dates: start: 20081004
  3. DIOVAN HCT [Concomitant]
     Indication: HYPERTENSION
     Dosage: NOT PROVIDED
  4. NORVASC [Concomitant]
     Indication: HYPERTENSION
     Dosage: NOT PROVIDED
  5. METOPROLOL SUCCINATE [Concomitant]
     Indication: HYPERTENSION
     Dosage: NOT PROVIDED
  6. URSO FALK [Concomitant]
     Indication: BILE DUCT OBSTRUCTION
     Dosage: NOT PROVIDED
  7. NEXIUM [Concomitant]
     Indication: PROPHYLAXIS AGAINST GASTROINTESTINAL ULCER
     Dosage: NOT PROVIDED

REACTIONS (1)
  - HEPATIC NEOPLASM MALIGNANT RECURRENT [None]
